FAERS Safety Report 7831034-2 (Version None)
Quarter: 2011Q4

REPORT INFORMATION
  Report Type: 
  Country: None (occurrence: None)
  Receive Date: 20111021
  Receipt Date: 20111019
  Transmission Date: 20120403
  Serious: Yes (Hospitalization)
  Sender: FDA-Public Use
  Company Number: US-CEPHALON-2011005213

PATIENT
  Sex: Male
  Weight: 64 kg

DRUGS (9)
  1. BYSTOLIC [Concomitant]
  2. ZOFRAN [Concomitant]
  3. ANDRODERM [Concomitant]
  4. SYMBICORT [Concomitant]
  5. DILAUDID [Concomitant]
  6. ZOSYN [Concomitant]
  7. PREDNISONE [Concomitant]
  8. NORVASC [Concomitant]
  9. TREANDA [Suspect]
     Indication: CHRONIC LYMPHOCYTIC LEUKAEMIA
     Route: 042
     Dates: start: 20110926

REACTIONS (3)
  - TUMOUR LYSIS SYNDROME [None]
  - BONE PAIN [None]
  - RENAL FAILURE [None]
